FAERS Safety Report 20342823 (Version 3)
Quarter: 2023Q1

REPORT INFORMATION
  Report Type: Report from Study
  Country: CA (occurrence: CA)
  Receive Date: 20220117
  Receipt Date: 20230228
  Transmission Date: 20230417
  Serious: Yes (Other)
  Sender: FDA-Public Use
  Company Number: CA-TAKEDA-2019TUS058485

PATIENT
  Age: 44 Year
  Sex: Female

DRUGS (11)
  1. VEDOLIZUMAB [Suspect]
     Active Substance: VEDOLIZUMAB
     Indication: Colitis ulcerative
     Dosage: 300 MILLIGRAM
     Route: 042
     Dates: start: 20190219
  2. VEDOLIZUMAB [Suspect]
     Active Substance: VEDOLIZUMAB
     Dosage: 300 MILLIGRAM, Q4WEEKS
     Route: 042
     Dates: start: 20190625
  3. VEDOLIZUMAB [Suspect]
     Active Substance: VEDOLIZUMAB
     Dosage: 300 MILLIGRAM, Q4WEEKS
     Route: 042
  4. VEDOLIZUMAB [Suspect]
     Active Substance: VEDOLIZUMAB
     Dosage: 300 MILLIGRAM, Q4WEEKS
     Route: 042
  5. VEDOLIZUMAB [Suspect]
     Active Substance: VEDOLIZUMAB
     Dosage: 300 MILLIGRAM, Q4WEEKS
     Route: 042
  6. VEDOLIZUMAB [Suspect]
     Active Substance: VEDOLIZUMAB
     Dosage: 300 MILLIGRAM, Q4WEEKS
     Route: 042
  7. PREVACID [Concomitant]
     Active Substance: LANSOPRAZOLE
     Dosage: 40 MILLIGRAM
     Route: 048
  8. METOCLOPRAMIDE [Concomitant]
     Active Substance: METOCLOPRAMIDE
     Dosage: 10 MILLIGRAM
     Route: 048
  9. CODEINE SULFATE [Concomitant]
     Active Substance: CODEINE SULFATE
     Dosage: 50 MILLIGRAM
     Route: 048
  10. LYRICA [Concomitant]
     Active Substance: PREGABALIN
     Dosage: 200 MILLIGRAM
     Route: 048
  11. CODEINE [Concomitant]
     Active Substance: CODEINE
     Dosage: 25 MILLIGRAM
     Route: 048
     Dates: start: 20210815

REACTIONS (5)
  - Pneumonia [Unknown]
  - Frequent bowel movements [Unknown]
  - Bronchitis [Unknown]
  - Sinusitis [Unknown]
  - Off label use [Unknown]

NARRATIVE: CASE EVENT DATE: 20190625
